FAERS Safety Report 17932862 (Version 2)
Quarter: 2020Q3

REPORT INFORMATION
  Report Type: Spontaneous
  Country: CN (occurrence: CN)
  Receive Date: 20200623
  Receipt Date: 20200702
  Transmission Date: 20201103
  Serious: Yes (Other)
  Sender: FDA-Public Use
  Company Number: CN-PFIZER INC-2020240035

PATIENT
  Age: 67 Year
  Sex: Female
  Weight: 65 kg

DRUGS (6)
  1. PACLITAXEL. [Suspect]
     Active Substance: PACLITAXEL
     Indication: NEOPLASM MALIGNANT
     Dosage: 240 MG, 1X/DAY
     Route: 041
     Dates: start: 20200528, end: 20200528
  2. PHARMORUBICIN [Suspect]
     Active Substance: EPIRUBICIN
     Indication: NEOPLASM MALIGNANT
     Dosage: 120 MG, 1X/DAY
     Route: 041
     Dates: start: 20200528, end: 20200528
  3. SODIUM CHLORIDE. [Concomitant]
     Active Substance: SODIUM CHLORIDE
     Dosage: 175 ML, 1X/DAY
     Dates: start: 20200528, end: 20200602
  4. TEGAFUR [Suspect]
     Active Substance: TEGAFUR
     Indication: NEOPLASM MALIGNANT
     Dosage: 125 ML, 1X/DAY
     Dates: start: 20200528, end: 20200602
  5. SODIUM CHLORIDE. [Concomitant]
     Active Substance: SODIUM CHLORIDE
     Indication: VEHICLE SOLUTION USE
     Dosage: 100 ML, 1X/DAY
     Route: 041
     Dates: start: 20200528, end: 20200528
  6. SODIUM CHLORIDE. [Concomitant]
     Active Substance: SODIUM CHLORIDE
     Indication: NEOPLASM MALIGNANT
     Dosage: 500 ML, 1X/DAY
     Route: 041
     Dates: start: 20200528, end: 20200528

REACTIONS (2)
  - White blood cell count decreased [Recovering/Resolving]
  - Myelosuppression [Recovering/Resolving]

NARRATIVE: CASE EVENT DATE: 20200604
